FAERS Safety Report 7056502-5 (Version None)
Quarter: 2010Q4

REPORT INFORMATION
  Report Type: 
  Country: None (occurrence: None)
  Receive Date: 20101021
  Receipt Date: 20101011
  Transmission Date: 20110411
  Serious: Yes (Other)
  Sender: FDA-Public Use
  Company Number: SE-PFIZER INC-2010128617

PATIENT
  Age: 50 Year
  Sex: Female

DRUGS (3)
  1. LYRICA [Suspect]
     Indication: NEURALGIA
     Dosage: UNK
  2. DIFLUCAN [Concomitant]
     Dosage: UNK
  3. CIPRAMIL [Concomitant]
     Dosage: UNK

REACTIONS (5)
  - DYSGEUSIA [None]
  - DYSPHAGIA [None]
  - ODYNOPHAGIA [None]
  - PHARYNGEAL DISORDER [None]
  - TONGUE DISCOLOURATION [None]
